FAERS Safety Report 16327850 (Version 2)
Quarter: 2019Q2

REPORT INFORMATION
  Report Type: Spontaneous
  Country: FI (occurrence: FI)
  Receive Date: 20190518
  Receipt Date: 20190611
  Transmission Date: 20190711
  Serious: Yes (Other)
  Sender: FDA-Public Use
  Company Number: FI-ROCHE-2315499

PATIENT
  Sex: Male

DRUGS (4)
  1. CORTISONE [Suspect]
     Active Substance: CORTISONE\HYDROCORTISONE
     Indication: OFF LABEL USE
  2. ROACTEMRA [Suspect]
     Active Substance: TOCILIZUMAB
     Indication: TEMPORAL ARTERITIS
     Route: 042
     Dates: start: 20181010
  3. CORTISONE [Suspect]
     Active Substance: CORTISONE\HYDROCORTISONE
     Indication: TEMPORAL ARTERITIS
     Route: 065
     Dates: start: 2018
  4. ROACTEMRA [Suspect]
     Active Substance: TOCILIZUMAB
     Indication: OFF LABEL USE

REACTIONS (9)
  - Fatigue [Recovered/Resolved]
  - Salivary gland calculus [Recovered/Resolved]
  - Herpes zoster [Recovered/Resolved]
  - Off label use [Unknown]
  - Macular hole [Recovered/Resolved]
  - Vitreous adhesions [Unknown]
  - Palpitations [Recovered/Resolved]
  - Intentional product use issue [Unknown]
  - Cyst [Unknown]

NARRATIVE: CASE EVENT DATE: 20181031
